FAERS Safety Report 10670554 (Version 2)
Quarter: 2014Q4

REPORT INFORMATION
  Report Type: Report from Study
  Country: US (occurrence: US)
  Receive Date: 20141223
  Receipt Date: 20141223
  Transmission Date: 20150529
  Serious: Yes (Other)
  Sender: FDA-Public Use
  Company Number: PHEH2013US026738

PATIENT
  Age: 37 Year
  Sex: Female

DRUGS (2)
  1. ILARIS [Suspect]
     Active Substance: CANAKINUMAB
     Dosage: 300 MG, ONCE A MONTH
     Route: 058
  2. ILARIS [Suspect]
     Active Substance: CANAKINUMAB
     Indication: CRYOPYRIN ASSOCIATED PERIODIC SYNDROME
     Dosage: 180 MG, UNK

REACTIONS (8)
  - Swelling [Unknown]
  - Vomiting [Unknown]
  - Brain oedema [Unknown]
  - Condition aggravated [Unknown]
  - Pain [Unknown]
  - CSF volume increased [Unknown]
  - Photosensitivity reaction [Unknown]
  - Pyrexia [Unknown]

NARRATIVE: CASE EVENT DATE: 20141201
